FAERS Safety Report 7670395-4 (Version None)
Quarter: 2011Q3

REPORT INFORMATION
  Report Type: 
  Country: None (occurrence: None)
  Receive Date: 20110809
  Receipt Date: 20110727
  Transmission Date: 20111222
  Serious: No
  Sender: FDA-Public Use
  Company Number: US-BIOGENIDEC-2011BI028319

PATIENT
  Sex: Female

DRUGS (3)
  1. AVONEX [Concomitant]
     Indication: MULTIPLE SCLEROSIS
     Route: 030
     Dates: start: 20100701
  2. AVONEX [Concomitant]
     Route: 030
     Dates: start: 19960101
  3. TYSABRI [Suspect]
     Indication: MULTIPLE SCLEROSIS
     Route: 042
     Dates: start: 20100526

REACTIONS (4)
  - VISION BLURRED [None]
  - VISUAL IMPAIRMENT [None]
  - JOINT SWELLING [None]
  - BALANCE DISORDER [None]
